FAERS Safety Report 5492695-9 (Version None)
Quarter: 2007Q4

REPORT INFORMATION
  Report Type: 
  Country: None (occurrence: None)
  Receive Date: 20071016
  Receipt Date: 20071004
  Transmission Date: 20080405
  Serious: Yes (Other)
  Sender: FDA-Public Use
  Company Number: CHPA2007US10384

PATIENT
  Age: 5 Year
  Sex: Female

DRUGS (3)
  1. TRIAMINIC INFANT DECONGESTANT COUGH (NCH) (DEXTROMETHORPHAN HYDROBROMI [Suspect]
     Indication: COUGH
     Dosage: ORAL
     Route: 048
     Dates: start: 20061201, end: 20061201
  2. TRIAMINIC THIN STRIPS COLD + COUGH (NCH) (DEXTROMETHORPHAN HYDROBROMID [Suspect]
     Dosage: ORAL
     Route: 048
  3. TRIAMINIC COLD (NCH) (PHENYLEPHRINE) DISPERSIBLE TABLET [Suspect]
     Dosage: ORAL
     Route: 048

REACTIONS (1)
  - CONVULSION [None]
